FAERS Safety Report 7937286-2 (Version None)
Quarter: 2011Q4

REPORT INFORMATION
  Report Type: 
  Country: None (occurrence: None)
  Receive Date: 20111123
  Receipt Date: 20111122
  Transmission Date: 20120403
  Serious: Yes (Hospitalization)
  Sender: FDA-Public Use
  Company Number: CH-PFIZER INC-2011279375

PATIENT
  Age: 70 Year
  Sex: Female

DRUGS (8)
  1. IRBESARTAN AND HYDROCHLOROTHIAZIDE [Suspect]
     Dosage: 12.5MG / 300 MG, 1X/DAY
     Route: 048
     Dates: end: 20111016
  2. NEXIUM [Concomitant]
     Dosage: 20 MG, 1X/DAY
     Dates: end: 20111016
  3. SINTROM [Concomitant]
     Dosage: UNK
  4. CORDARONE [Concomitant]
     Dosage: 200 MG, 1X/DAY
     Dates: start: 20110101, end: 20111016
  5. ZOLPIDEM TARTRATE [Concomitant]
     Dosage: 10 MG, 1X/DAY
  6. FLUANXOL [Suspect]
     Dosage: 0.5 MG, 1X/DAY
     Route: 048
     Dates: start: 20110901, end: 20111013
  7. SIMVASTATIN [Concomitant]
     Dosage: 20 MG, 1X/DAY
  8. ZOLOFT [Suspect]
     Dosage: 50 MG, 1X/DAY
     Route: 048
     Dates: start: 20110501, end: 20111016

REACTIONS (2)
  - TREMOR [None]
  - HYPOKALAEMIA [None]
